FAERS Safety Report 5994563-2 (Version None)
Quarter: 2008Q4

REPORT INFORMATION
  Report Type: 
  Country: None (occurrence: None)
  Receive Date: 20081209
  Receipt Date: 20081023
  Transmission Date: 20090506
  Serious: No
  Sender: FDA-Public Use
  Company Number: 002#2#2007-00248

PATIENT
  Age: 68 Year
  Sex: Female
  Weight: 86.1834 kg

DRUGS (14)
  1. NEUPRO [Suspect]
     Indication: PARKINSON'S DISEASE
     Dosage: MG/24H,1 IN 1,TRANSDERMAL ;12MG/24H,1 IN 1 D,TRANSDERMAL ; 4MG/24H,1 IN 1 D, TRANSDERMAL
     Route: 062
     Dates: start: 20070716, end: 20070923
  2. NEUPRO [Suspect]
     Indication: PARKINSON'S DISEASE
     Dosage: MG/24H,1 IN 1,TRANSDERMAL ;12MG/24H,1 IN 1 D,TRANSDERMAL ; 4MG/24H,1 IN 1 D, TRANSDERMAL
     Route: 062
     Dates: start: 20070901, end: 20070923
  3. NEUPRO [Suspect]
     Indication: PARKINSON'S DISEASE
     Dosage: MG/24H,1 IN 1,TRANSDERMAL ;12MG/24H,1 IN 1 D,TRANSDERMAL ; 4MG/24H,1 IN 1 D, TRANSDERMAL
     Route: 062
     Dates: start: 20070924, end: 20070924
  4. UNSPECIFIED TRANQUILIZER [Concomitant]
  5. ALPRAZOLAM [Concomitant]
  6. FOSAMAX [Concomitant]
  7. COMTAN [Concomitant]
  8. SINEMET [Concomitant]
  9. MIRAPEX [Concomitant]
  10. AZILECT [Concomitant]
  11. ENABLEX [Concomitant]
  12. AMBIEN [Concomitant]
  13. ASPIRIN [Concomitant]
  14. SINEMET CR [Concomitant]

REACTIONS (6)
  - DYSPNOEA [None]
  - MUSCULAR WEAKNESS [None]
  - OVERDOSE [None]
  - PANIC ATTACK [None]
  - TREMOR [None]
  - WEIGHT INCREASED [None]
